FAERS Safety Report 7381353-1 (Version None)
Quarter: 2011Q1

REPORT INFORMATION
  Report Type: 
  Country: None (occurrence: None)
  Receive Date: 20110323
  Receipt Date: 20110323
  Transmission Date: 20110831
  Serious: Yes (Hospitalization)
  Sender: FDA-Public Use
  Company Number: None

PATIENT
  Sex: Male
  Weight: 79.5 kg

DRUGS (2)
  1. CISPLATIN [Suspect]
     Dosage: 51 MG
     Dates: end: 20110307
  2. PACLITAXEL [Suspect]
     Dosage: 101.5 MG
     Dates: end: 20110307

REACTIONS (1)
  - ANAEMIA [None]
